FAERS Safety Report 8920902 (Version 5)
Quarter: 2013Q4

REPORT INFORMATION
  Report Type: Report from Study
  Country: GB (occurrence: GB)
  Receive Date: 20121121
  Receipt Date: 20131210
  Transmission Date: 20140711
  Serious: No
  Sender: FDA-Public Use
  Company Number: GB-VIIV HEALTHCARE LIMITED-A1002572A

PATIENT
  Sex: Male
  Weight: 4.1 kg

DRUGS (4)
  1. NORVIR [Suspect]
     Indication: ANTIRETROVIRAL THERAPY
     Dosage: 100MG PER DAY
     Route: 064
     Dates: start: 20040206
  2. ISENTRESS [Suspect]
     Indication: HIV INFECTION
     Dosage: 400MG PER DAY
     Route: 064
     Dates: start: 20120720
  3. SELZENTRY [Suspect]
     Indication: ANTIRETROVIRAL THERAPY
     Dosage: 150MG PER DAY
     Route: 064
     Dates: start: 20120720
  4. PREZISTA [Suspect]
     Indication: ANTIRETROVIRAL THERAPY
     Dosage: 600MG PER DAY
     Route: 064
     Dates: start: 20120807

REACTIONS (2)
  - Foetal exposure during pregnancy [Unknown]
  - Kidney enlargement [Recovered/Resolved]
